FAERS Safety Report 13993393 (Version 1)
Quarter: 2017Q3

REPORT INFORMATION
  Report Type: Spontaneous
  Country: CN (occurrence: CN)
  Receive Date: 20170920
  Receipt Date: 20170920
  Transmission Date: 20171128
  Serious: Yes (Other)
  Sender: FDA-Public Use
  Company Number: CN-JNJFOC-20170825753

PATIENT

DRUGS (3)
  1. PALIPERIDONE. [Suspect]
     Active Substance: PALIPERIDONE
     Indication: MENTAL DISORDER
     Route: 065
  2. OLANZAPINE. [Suspect]
     Active Substance: OLANZAPINE
     Indication: MENTAL DISORDER
     Route: 065
  3. RISPERIDONE. [Suspect]
     Active Substance: RISPERIDONE
     Indication: MENTAL DISORDER
     Route: 065

REACTIONS (23)
  - Arrhythmia [Unknown]
  - Transaminases increased [Unknown]
  - Galactorrhoea [Unknown]
  - Extrapyramidal disorder [Unknown]
  - Tremor [Unknown]
  - Amenorrhoea [Unknown]
  - Heart rate decreased [Unknown]
  - Glycosylated haemoglobin increased [Unknown]
  - Blood prolactin increased [Unknown]
  - Constipation [Unknown]
  - Sinus tachycardia [Unknown]
  - Chest pain [Unknown]
  - Epistaxis [Unknown]
  - Palpitations [Unknown]
  - Rash [Unknown]
  - Sinus bradycardia [Unknown]
  - Heart rate increased [Unknown]
  - Somnolence [Unknown]
  - Vision blurred [Unknown]
  - Nausea [Unknown]
  - Weight increased [Unknown]
  - Purpura [Unknown]
  - Chest discomfort [Unknown]
